FAERS Safety Report 10023557 (Version 1)
Quarter: 2014Q1

REPORT INFORMATION
  Report Type: Spontaneous
  Country: DE (occurrence: DE)
  Receive Date: 20140320
  Receipt Date: 20140320
  Transmission Date: 20141002
  Serious: Yes (Life-Threatening, Hospitalization)
  Sender: FDA-Public Use
  Company Number: DE-JNJFOC-20140311786

PATIENT
  Age: 76 Year
  Sex: Male

DRUGS (1)
  1. REOPRO [Suspect]
     Indication: MYOCARDIAL INFARCTION
     Route: 042
     Dates: start: 20140316, end: 20140316

REACTIONS (2)
  - Pericardial effusion [Unknown]
  - Platelet count decreased [Unknown]
